FAERS Safety Report 18546459 (Version 2)
Quarter: 2020Q4

REPORT INFORMATION
  Report Type: Not Available
  Country: None (occurrence: None)
  Receive Date: 20201125
  Receipt Date: 20201210
  Transmission Date: 20210114
  Serious: No
  Sender: FDA-Public Use
  Company Number: US-AKORN-150443

PATIENT
  Age: 19 Year
  Sex: Female

DRUGS (1)
  1. MYORISAN [Suspect]
     Active Substance: ISOTRETINOIN

REACTIONS (7)
  - Hair texture abnormal [Not Recovered/Not Resolved]
  - Off label use [Recovered/Resolved]
  - Chapped lips [Not Recovered/Not Resolved]
  - Headache [None]
  - Dry skin [Not Recovered/Not Resolved]
  - Therapeutic product effect incomplete [Unknown]
  - Alopecia [None]

NARRATIVE: CASE EVENT DATE: 20200408
